FAERS Safety Report 25484577 (Version 1)
Quarter: 2025Q2

REPORT INFORMATION
  Report Type: Spontaneous
  Country: US (occurrence: None)
  Receive Date: 20250626
  Receipt Date: 20250626
  Transmission Date: 20250716
  Serious: Yes (Disabling, Other)
  Sender: FDA-CTU
  Company Number: None

PATIENT
  Age: 41 Year
  Sex: Male
  Weight: 94.5 kg

DRUGS (4)
  1. ZYPREXA [Suspect]
     Active Substance: OLANZAPINE
     Indication: Post-traumatic stress disorder
     Dosage: FREQUENCY : AT BEDTIME;?
     Route: 048
  2. ZYPREXA [Suspect]
     Active Substance: OLANZAPINE
     Indication: Insomnia
  3. ZYPREXA [Suspect]
     Active Substance: OLANZAPINE
     Indication: Bipolar I disorder
  4. ZYPREXA [Suspect]
     Active Substance: OLANZAPINE
     Indication: Bronchopulmonary dysplasia

REACTIONS (5)
  - Flat affect [None]
  - Weight increased [None]
  - Mania [None]
  - Near death experience [None]
  - Decreased interest [None]

NARRATIVE: CASE EVENT DATE: 20250215
